FAERS Safety Report 7834826-9 (Version None)
Quarter: 2011Q4

REPORT INFORMATION
  Report Type: 
  Country: None (occurrence: None)
  Receive Date: 20111024
  Receipt Date: 20111020
  Transmission Date: 20120403
  Serious: Yes (Hospitalization)
  Sender: FDA-Public Use
  Company Number: AU-B.I. PHARMACEUTICALS,INC./RIDGEFIELD-2011-AU-01776AU

PATIENT
  Sex: Female
  Weight: 54 kg

DRUGS (8)
  1. PRADAXA [Suspect]
     Indication: ATRIAL FIBRILLATION
     Dosage: 220 MG
     Dates: start: 20111002, end: 20111013
  2. PANTOPRAZOLE [Concomitant]
     Dosage: 40 MCG
     Dates: start: 20111006
  3. DIGOXIN [Concomitant]
     Dosage: 62.5 MCG
  4. FUROSEMIDE [Concomitant]
     Dosage: 20 MCG
  5. ATACAND [Concomitant]
     Dosage: 32 MG
  6. METOPROLOL TARTRATE [Concomitant]
     Dosage: 100 MCG
  7. VALPROATE SODIUM [Concomitant]
     Dosage: 600 MCG
  8. ATORVASTATIN [Concomitant]
     Dosage: 10 MCG

REACTIONS (2)
  - DYSPHAGIA [None]
  - DYSPEPSIA [None]
